FAERS Safety Report 19867173 (Version 3)
Quarter: 2022Q3

REPORT INFORMATION
  Report Type: Spontaneous
  Country: US (occurrence: US)
  Receive Date: 20210921
  Receipt Date: 20220926
  Transmission Date: 20221027
  Serious: No
  Sender: FDA-Public Use
  Company Number: US-PFIZER INC-2021797409

PATIENT
  Age: 65 Year
  Sex: Female

DRUGS (2)
  1. ESTRING [Suspect]
     Active Substance: ESTRADIOL
     Indication: Vulvovaginal dryness
     Dosage: INSERT 1 VAGINAL RING (S) EVERY 3 MONTHS BY VAGINAL ROUTE AS DIRECTED FOR 90 DAYS
     Route: 067
  2. ESTRING [Suspect]
     Active Substance: ESTRADIOL
     Indication: Vaginal disorder

REACTIONS (2)
  - Frustration tolerance decreased [Unknown]
  - Depression [Unknown]
